FAERS Safety Report 5070307-6 (Version None)
Quarter: 2006Q3

REPORT INFORMATION
  Report Type: 
  Country: None (occurrence: None)
  Receive Date: 20060714
  Receipt Date: 20060411
  Transmission Date: 20061208
  Serious: No
  Sender: FDA-Public Use
  Company Number: 2006SP001668

PATIENT
  Age: 57 Year
  Sex: Female
  Weight: 51.7101 kg

DRUGS (8)
  1. LUNESTA [Suspect]
     Indication: RESTLESSNESS
     Dosage: SEE IMAGE
     Route: 048
     Dates: start: 20050916, end: 20050901
  2. LUNESTA [Suspect]
     Indication: RESTLESSNESS
     Dosage: SEE IMAGE
     Route: 048
     Dates: start: 20050901, end: 20050924
  3. ESTRADIOL INJ [Concomitant]
  4. DARVOCET [Concomitant]
  5. MULTIVITAMIN [Concomitant]
  6. CALCIUM GLUCONATE [Concomitant]
  7. VITAMIN E [Concomitant]
  8. ASCORBIC ACID [Concomitant]

REACTIONS (3)
  - DYSGEUSIA [None]
  - NAUSEA [None]
  - VOMITING [None]
